FAERS Safety Report 19754481 (Version 1)
Quarter: 2021Q3

REPORT INFORMATION
  Report Type: Spontaneous
  Country: US (occurrence: US)
  Receive Date: 20210825
  Receipt Date: 20210825
  Transmission Date: 20211014
  Serious: Yes (Hospitalization)
  Sender: FDA-Public Use
  Company Number: None

PATIENT
  Age: 73 Year
  Sex: Female
  Weight: 79.8 kg

DRUGS (1)
  1. ARIMIDEX [Suspect]
     Active Substance: ANASTROZOLE
     Dates: start: 20061229, end: 20161227

REACTIONS (4)
  - End stage renal disease [None]
  - Pneumonia [None]
  - COVID-19 [None]
  - Haemodialysis [None]

NARRATIVE: CASE EVENT DATE: 20210815
